FAERS Safety Report 7808231-5 (Version None)
Quarter: 2011Q4

REPORT INFORMATION
  Report Type: 
  Country: None (occurrence: None)
  Receive Date: 20111011
  Receipt Date: 20111005
  Transmission Date: 20120403
  Serious: Yes (Life-Threatening, Hospitalization)
  Sender: FDA-Public Use
  Company Number: DE-BRISTOL-MYERS SQUIBB COMPANY-16143216

PATIENT
  Age: 68 Year
  Sex: Female
  Weight: 53 kg

DRUGS (3)
  1. PACLITAXEL [Suspect]
     Indication: ADENOCARCINOMA
     Dates: start: 20110927, end: 20110927
  2. CETUXIMAB [Suspect]
     Indication: ADENOCARCINOMA
     Dates: start: 20110927, end: 20110927
  3. CARBOPLATIN [Suspect]
     Indication: ADENOCARCINOMA
     Dates: start: 20110927, end: 20110927

REACTIONS (1)
  - SUPRAVENTRICULAR TACHYCARDIA [None]
